FAERS Safety Report 15861931 (Version 2)
Quarter: 2019Q1

REPORT INFORMATION
  Report Type: Spontaneous
  Country: US (occurrence: US)
  Receive Date: 20190124
  Receipt Date: 20190326
  Transmission Date: 20190417
  Serious: No
  Sender: FDA-Public Use
  Company Number: US-PFIZER INC-2019027004

PATIENT
  Age: 55 Year
  Sex: Female

DRUGS (2)
  1. EUCRISA [Suspect]
     Active Substance: CRISABOROLE
     Indication: RASH
     Dosage: UNK
     Route: 061
     Dates: start: 20190107, end: 20190117
  2. EUCRISA [Suspect]
     Active Substance: CRISABOROLE
     Indication: DERMATITIS

REACTIONS (4)
  - Application site swelling [Not Recovered/Not Resolved]
  - Application site pruritus [Not Recovered/Not Resolved]
  - Application site pain [Recovered/Resolved]
  - Application site pustules [Not Recovered/Not Resolved]

NARRATIVE: CASE EVENT DATE: 201901
